FAERS Safety Report 6873561-0 (Version None)
Quarter: 2010Q3

REPORT INFORMATION
  Report Type: 
  Country: None (occurrence: None)
  Receive Date: 20100723
  Receipt Date: 20090202
  Transmission Date: 20110219
  Serious: No
  Sender: FDA-Public Use
  Company Number: US-PFIZER INC-2009167197

PATIENT
  Sex: Female
  Weight: 65.8 kg

DRUGS (14)
  1. CHANTIX [Suspect]
     Indication: SMOKING CESSATION THERAPY
     Dosage: 1 MG, 2X/DAY
     Route: 048
     Dates: start: 20090126, end: 20090128
  2. CALCIUM WITH VITAMIN D [Concomitant]
     Dosage: UNK
  3. ZOLPIDEM TARTRATE [Concomitant]
     Dosage: UNK
  4. XANAX [Concomitant]
     Dosage: UNK
  5. ZOLOFT [Concomitant]
     Dosage: UNK
  6. ZYRTEC [Concomitant]
     Dosage: UNK
  7. GEODON [Concomitant]
     Dosage: UNK
  8. OMEGA-3 MARINE TRIGLYCERIDES [Concomitant]
     Dosage: UNK
  9. VACCINIUM MACROCARPON [Concomitant]
     Dosage: UNK
  10. VITAMIN D [Concomitant]
     Dosage: UNK
  11. NEURONTIN [Concomitant]
     Dosage: UNK
  12. DARVOCET [Concomitant]
     Dosage: UNK
  13. VITAMINS [Concomitant]
     Dosage: UNK
  14. FENTANYL [Concomitant]
     Dosage: UNK
     Route: 061

REACTIONS (3)
  - MALAISE [None]
  - NAUSEA [None]
  - VOMITING [None]
